FAERS Safety Report 9202636 (Version 3)
Quarter: 2013Q4

REPORT INFORMATION
  Report Type: Report from Study
  Country: BR (occurrence: BR)
  Receive Date: 20130401
  Receipt Date: 20131009
  Transmission Date: 20140711
  Serious: Yes (Hospitalization)
  Sender: FDA-Public Use
  Company Number: BR-US-EMD SERONO, INC.-7201730

PATIENT
  Age: 66 Year
  Sex: Female

DRUGS (13)
  1. REBIF [Suspect]
     Indication: MULTIPLE SCLEROSIS
     Dates: start: 20130201, end: 20130313
  2. APRESOLINE [Concomitant]
     Indication: PRODUCT USED FOR UNKNOWN INDICATION
  3. OMEPRAZOLE [Concomitant]
     Indication: PRODUCT USED FOR UNKNOWN INDICATION
  4. ATENSINA [Concomitant]
     Indication: PRODUCT USED FOR UNKNOWN INDICATION
  5. MOTILIUM [Concomitant]
     Indication: DYSPEPSIA
  6. COMBIRON [Concomitant]
     Indication: PRODUCT USED FOR UNKNOWN INDICATION
  7. CEWIN [Concomitant]
     Indication: PRODUCT USED FOR UNKNOWN INDICATION
  8. PROPRANOLOL [Concomitant]
     Indication: PRODUCT USED FOR UNKNOWN INDICATION
  9. ATORVASTATIN [Concomitant]
     Indication: FAT REDISTRIBUTION
  10. VITAMIN C                          /00008001/ [Concomitant]
     Indication: IMMUNE SYSTEM DISORDER
  11. AAS [Concomitant]
     Indication: CARDIOVASCULAR DISORDER
  12. HYDROCHLOROTHIAZIDE [Concomitant]
     Indication: HYPERTENSION
  13. LOSARTAN [Concomitant]
     Indication: HYPERTENSION

REACTIONS (1)
  - Urinary tract infection [Unknown]
